FAERS Safety Report 4285009-3 (Version None)
Quarter: 2004Q1

REPORT INFORMATION
  Report Type: 
  Country: None (occurrence: None)
  Receive Date: 20040202
  Receipt Date: 20040121
  Transmission Date: 20041129
  Serious: Yes (Hospitalization)
  Sender: FDA-Public Use
  Company Number: 2004004204

PATIENT
  Age: 47 Year
  Sex: Female

DRUGS (5)
  1. TAHOR (ATORVASTATIN) [Suspect]
     Indication: BLOOD CHOLESTEROL
     Dosage: 40 MG
     Dates: start: 20031201
  2. FENOFIBRATE [Suspect]
     Indication: BLOOD CHOLESTEROL
     Dates: start: 20020101, end: 20031201
  3. CELECOXIB [Concomitant]
  4. ESOMEPRAZOLE [Concomitant]
  5. CEFTRIAXONE [Concomitant]

REACTIONS (3)
  - BRONCHITIS [None]
  - GASTROINTESTINAL HAEMORRHAGE [None]
  - HEPATITIS [None]
